FAERS Safety Report 17905223 (Version 1)
Quarter: 2020Q2

REPORT INFORMATION
  Report Type: Spontaneous
  Country: US (occurrence: US)
  Receive Date: 20200616
  Receipt Date: 20200616
  Transmission Date: 20200714
  Serious: No
  Sender: FDA-Public Use
  Company Number: US-ROCHE-2555114

PATIENT
  Age: 67 Year
  Sex: Female

DRUGS (7)
  1. PREDNISONE. [Concomitant]
     Active Substance: PREDNISONE
     Indication: TEMPORAL ARTERITIS
     Dosage: FIVE 4 MG TABLETS IN THE MORNING
     Route: 065
  2. ZYPREXA [Concomitant]
     Active Substance: OLANZAPINE
     Indication: DEPRESSION
     Route: 065
  3. GLIPIZIDE. [Concomitant]
     Active Substance: GLIPIZIDE
     Indication: DIABETES MELLITUS
     Dosage: ONE AT BREAKFAST AND ONE AT DINNER
     Route: 048
  4. CYMBALTA [Concomitant]
     Active Substance: DULOXETINE HYDROCHLORIDE
     Indication: DEPRESSION
     Route: 065
  5. BENZONATATE. [Concomitant]
     Active Substance: BENZONATATE
     Indication: COUGH
     Route: 048
  6. EMGALITY [Concomitant]
     Active Substance: GALCANEZUMAB-GNLM
     Indication: MIGRAINE
     Route: 065
  7. ACTEMRA [Suspect]
     Active Substance: TOCILIZUMAB
     Indication: TEMPORAL ARTERITIS
     Dosage: EVERY TUESDAY ;ONGOING: YES, STRENGTH: 162 MG/0.9 ML
     Route: 065
     Dates: start: 20200101

REACTIONS (3)
  - Cough [Not Recovered/Not Resolved]
  - Device malfunction [Unknown]
  - Injection site pain [Unknown]

NARRATIVE: CASE EVENT DATE: 20200101
